FAERS Safety Report 23896303 (Version 1)
Quarter: 2024Q2

REPORT INFORMATION
  Report Type: Report from Study
  Country: IN (occurrence: IN)
  Receive Date: 20240524
  Receipt Date: 20240524
  Transmission Date: 20240716
  Serious: Yes (Other)
  Sender: FDA-Public Use
  Company Number: IN-002147023-NVSC2022IN093183

PATIENT

DRUGS (3)
  1. RUXOLITINIB [Suspect]
     Active Substance: RUXOLITINIB
     Indication: Primary myelofibrosis
     Dosage: 5 MG, BID (TWICE A DAY)
     Route: 048
     Dates: start: 20210714
  2. RUXOLITINIB [Suspect]
     Active Substance: RUXOLITINIB
     Indication: Myeloproliferative neoplasm
     Dosage: 5 MG, QD
     Route: 065
     Dates: start: 20220409
  3. RUXOLITINIB [Suspect]
     Active Substance: RUXOLITINIB
     Indication: Janus kinase 2 mutation
     Dosage: 0.5 DOSAGE FORM (HALF TABLET OF JAKAVI 5 MG)
     Route: 065
     Dates: start: 202312

REACTIONS (13)
  - Haemoglobin decreased [Unknown]
  - Blood creatinine abnormal [Unknown]
  - Platelet count abnormal [Unknown]
  - Blood pressure systolic increased [Unknown]
  - Off label use [Unknown]
  - Pain [Unknown]
  - Platelet count decreased [Unknown]
  - Fatigue [Unknown]
  - Wrong technique in product usage process [Not Recovered/Not Resolved]
  - Splenomegaly [Unknown]
  - Liver disorder [Unknown]
  - Product use issue [Unknown]
  - Asthenia [Unknown]

NARRATIVE: CASE EVENT DATE: 20220409
